FAERS Safety Report 5713772-0 (Version None)
Quarter: 2008Q2

REPORT INFORMATION
  Report Type: 
  Country: None (occurrence: None)
  Receive Date: 20080421
  Receipt Date: 20070613
  Transmission Date: 20081010
  Serious: Yes (Other)
  Sender: FDA-Public Use
  Company Number: 163-20785-08040771

PATIENT
  Age: 78 Year
  Sex: Male

DRUGS (4)
  1. THALOMID [Suspect]
     Indication: MULTIPLE MYELOMA
     Dosage: 400-200MG, DAILY, ORAL, 300-200MG, DAILY, ORAL, 200-300MG, DAILY, ORAL, 200MG, 2 IN 1, ORAL
     Route: 048
     Dates: start: 20030304, end: 20031201
  2. THALOMID [Suspect]
     Indication: MULTIPLE MYELOMA
     Dosage: 400-200MG, DAILY, ORAL, 300-200MG, DAILY, ORAL, 200-300MG, DAILY, ORAL, 200MG, 2 IN 1, ORAL
     Route: 048
     Dates: start: 20031226, end: 20051101
  3. THALOMID [Suspect]
     Indication: MULTIPLE MYELOMA
     Dosage: 400-200MG, DAILY, ORAL, 300-200MG, DAILY, ORAL, 200-300MG, DAILY, ORAL, 200MG, 2 IN 1, ORAL
     Route: 048
     Dates: start: 20051116, end: 20060701
  4. THALOMID [Suspect]
     Indication: MULTIPLE MYELOMA
     Dosage: 400-200MG, DAILY, ORAL, 300-200MG, DAILY, ORAL, 200-300MG, DAILY, ORAL, 200MG, 2 IN 1, ORAL
     Route: 048
     Dates: start: 20060714

REACTIONS (3)
  - ASTHENIA [None]
  - OSTEONECROSIS [None]
  - PURULENCE [None]
